FAERS Safety Report 10171870 (Version 1)
Quarter: 2014Q2

REPORT INFORMATION
  Report Type: Spontaneous
  Country: US (occurrence: None)
  Receive Date: 20140512
  Receipt Date: 20140512
  Transmission Date: 20141212
  Serious: Yes (Death)
  Sender: FDA-Public Use
  Company Number: 1713747-2014-99964

PATIENT
  Age: 85 Year
  Sex: Male
  Weight: 74.4 kg

DRUGS (2)
  1. SALINE [Suspect]
     Indication: RENAL FAILURE CHRONIC
     Route: 010
  2. 2008T HEMODIALYSIS SYSTEM OPTIFLUX DIALYZER NATURALYTE AND GRANUFLO CUSTOM COMBI SET [Concomitant]

REACTIONS (1)
  - Unresponsive to stimuli [None]
